FAERS Safety Report 4577505-6 (Version None)
Quarter: 2005Q1

REPORT INFORMATION
  Report Type: 
  Country: None (occurrence: None)
  Receive Date: 20050127
  Receipt Date: 20040902
  Transmission Date: 20050727
  Serious: No
  Sender: FDA-Public Use
  Company Number: US_0409105421

PATIENT
  Age: 13 Year
  Sex: Male
  Weight: 43 kg

DRUGS (2)
  1. STRATTERA [Suspect]
     Indication: ATTENTION DEFICIT/HYPERACTIVITY DISORDER
     Dosage: 60 MG/L DAY
  2. ESENTIAL FATTY ACID [Concomitant]

REACTIONS (9)
  - ABNORMAL BEHAVIOUR [None]
  - DISTURBANCE IN ATTENTION [None]
  - DRUG INEFFECTIVE [None]
  - EXCITABILITY [None]
  - INSOMNIA [None]
  - MEMORY IMPAIRMENT [None]
  - NASOPHARYNGITIS [None]
  - PSYCHOMOTOR HYPERACTIVITY [None]
  - WEIGHT INCREASED [None]
